FAERS Safety Report 7948242-2 (Version None)
Quarter: 2011Q4

REPORT INFORMATION
  Report Type: 
  Country: None (occurrence: None)
  Receive Date: 20111125
  Receipt Date: 20111108
  Transmission Date: 20120403
  Serious: Yes (Other)
  Sender: FDA-Public Use
  Company Number: FK201102651

PATIENT
  Age: 55 Year
  Sex: Male

DRUGS (3)
  1. PACLITAXEL [Suspect]
     Indication: NON-SMALL CELL LUNG CANCER METASTATIC
     Dosage: 175 MG/M2
  2. BEVACIZUMAB (BEVACIZUMAB) (BEVACIZUMAB) [Concomitant]
  3. CARBOPLATIN [Suspect]
     Indication: NON-SMALL CELL LUNG CANCER METASTATIC
     Dosage: AUC 5

REACTIONS (3)
  - JUGULAR VEIN THROMBOSIS [None]
  - PULMONARY EMBOLISM [None]
  - PLEURAL EFFUSION [None]
